FAERS Safety Report 17614318 (Version 11)
Quarter: 2022Q4

REPORT INFORMATION
  Report Type: Report from Study
  Country: US (occurrence: US)
  Receive Date: 20200402
  Receipt Date: 20221209
  Transmission Date: 20230113
  Serious: No
  Sender: FDA-Public Use
  Company Number: NVSC2020US083676

PATIENT
  Sex: Female

DRUGS (1)
  1. GILENYA [Suspect]
     Active Substance: FINGOLIMOD HYDROCHLORIDE
     Indication: Multiple sclerosis
     Dosage: 0.5 MG, QD
     Route: 048
     Dates: start: 20150811

REACTIONS (7)
  - Red blood cell count decreased [Unknown]
  - Vitamin B12 decreased [Unknown]
  - Disturbance in attention [Unknown]
  - Phobia of driving [Not Recovered/Not Resolved]
  - Stress [Unknown]
  - Visual impairment [Unknown]
  - White blood cell count decreased [Unknown]
